FAERS Safety Report 10355598 (Version 2)
Quarter: 2014Q3

REPORT INFORMATION
  Report Type: Spontaneous
  Country: US (occurrence: None)
  Receive Date: 20140728
  Receipt Date: 20140902
  Transmission Date: 20150326
  Serious: Yes (Other)
  Sender: FDA-Public Use
  Company Number: UNT-2014-004269

PATIENT
  Age: 62 Year
  Sex: Female

DRUGS (3)
  1. ADCIRCA (TADALAFIL) UNKNOWN [Concomitant]
  2. REMODULIN [Suspect]
     Active Substance: TREPROSTINIL
     Indication: PULMONARY ARTERIAL HYPERTENSION
     Dosage: 0.034 UG/KG, CONTINUING, SUBCUTANEOUS
     Route: 058
     Dates: start: 20050310
  3. TRACLEER (BOSENTAN) UNKNOWN [Concomitant]

REACTIONS (6)
  - Nervousness [None]
  - Device occlusion [None]
  - Drug dose omission [None]
  - Dyspnoea [None]
  - Throat tightness [None]
  - Device alarm issue [None]

NARRATIVE: CASE EVENT DATE: 20140715
